FAERS Safety Report 5521908-X (Version None)
Quarter: 2007Q4

REPORT INFORMATION
  Report Type: 
  Country: None (occurrence: None)
  Receive Date: 20071120
  Receipt Date: 20071113
  Transmission Date: 20080405
  Serious: Yes (Hospitalization)
  Sender: FDA-Public Use
  Company Number: JP-BAYER-200716670GDS

PATIENT
  Age: 79 Year
  Sex: Female

DRUGS (7)
  1. BUFFERIN [Suspect]
     Indication: DRUG USE FOR UNKNOWN INDICATION
     Dosage: UNIT DOSE: 81 MG
     Route: 048
     Dates: start: 20051101, end: 20060426
  2. LEVOFLOXACIN [Concomitant]
     Indication: FOREIGN BODY SENSATION IN EYES
     Route: 047
     Dates: start: 20070413
  3. 0.1 HYALEIN (HYALURONIC ACID) [Concomitant]
     Indication: FOREIGN BODY SENSATION IN EYES
     Route: 047
     Dates: start: 20070413
  4. SANBETASON (BETAMETHASONE SODIUM PHOSPHATE EYE-DROPS) [Concomitant]
     Indication: SCLERITIS
     Route: 047
     Dates: start: 20070414
  5. OMEPRAL [Concomitant]
     Indication: DRUG USE FOR UNKNOWN INDICATION
     Route: 065
     Dates: end: 20060426
  6. CARVEDILOL [Concomitant]
     Indication: DRUG USE FOR UNKNOWN INDICATION
     Route: 065
  7. AZULAVINE/AZ (SODIUM AZULENE SULFONATE EYE-DROP) [Concomitant]
     Indication: DRUG USE FOR UNKNOWN INDICATION
     Route: 047

REACTIONS (1)
  - CORNEAL PERFORATION [None]
